FAERS Safety Report 16427413 (Version 1)
Quarter: 2019Q2

REPORT INFORMATION
  Report Type: Spontaneous
  Country: CA (occurrence: CA)
  Receive Date: 20190613
  Receipt Date: 20190613
  Transmission Date: 20190711
  Serious: Yes (Life-Threatening, Hospitalization)
  Sender: FDA-Public Use
  Company Number: CA-TEVA-2019-CA-1062596

PATIENT
  Age: 10 Year
  Sex: Male
  Weight: 82 kg

DRUGS (7)
  1. HYDROMORPHONE [Suspect]
     Active Substance: HYDROMORPHONE
     Route: 048
  2. SAIZEN [Concomitant]
     Active Substance: SOMATROPIN
  3. ACETAMINOPHEN. [Concomitant]
     Active Substance: ACETAMINOPHEN
  4. SENOKOT [Concomitant]
     Active Substance: SENNOSIDES
  5. DDAVP [Suspect]
     Active Substance: DESMOPRESSIN ACETATE
     Indication: DIABETES INSIPIDUS
     Dosage: 6.4 MILLIGRAM DAILY;
     Route: 048
  6. HYDROCORTISONE. [Concomitant]
     Active Substance: HYDROCORTISONE
  7. IBUPROFEN. [Suspect]
     Active Substance: IBUPROFEN
     Indication: FEMUR FRACTURE
     Route: 048

REACTIONS (2)
  - Seizure [Recovered/Resolved]
  - Hyponatraemia [Recovered/Resolved]
